FAERS Safety Report 18528067 (Version 2)
Quarter: 2020Q4

REPORT INFORMATION
  Report Type: Report from Study
  Country: US (occurrence: US)
  Receive Date: 20201120
  Receipt Date: 20201209
  Transmission Date: 20210114
  Serious: Yes (Other)
  Sender: FDA-Public Use
  Company Number: US-SUNOVION-2020SUN003426

PATIENT
  Sex: Male

DRUGS (5)
  1. CARBIDOPA. [Concomitant]
     Active Substance: CARBIDOPA
     Dosage: UNK
     Route: 065
     Dates: end: 20201019
  2. LEVODOPA [Concomitant]
     Active Substance: LEVODOPA
     Dosage: UNK
     Route: 065
     Dates: end: 20201019
  3. KYNMOBI [Suspect]
     Active Substance: APOMORPHINE HYDROCHLORIDE
     Indication: PARKINSON^S DISEASE
     Dosage: 10 MG (2ND DOSE)
     Route: 060
     Dates: start: 20201112
  4. KYNMOBI [Suspect]
     Active Substance: APOMORPHINE HYDROCHLORIDE
     Dosage: 10 MG UNK
     Route: 060
     Dates: start: 20201019
  5. KYNMOBI [Suspect]
     Active Substance: APOMORPHINE HYDROCHLORIDE
     Dosage: 10 MG (1ST DOSE)
     Route: 060
     Dates: start: 20201111

REACTIONS (1)
  - Fall [Unknown]
